FAERS Safety Report 6837239-1 (Version None)
Quarter: 2010Q3

REPORT INFORMATION
  Report Type: 
  Country: None (occurrence: None)
  Receive Date: 20100713
  Receipt Date: 20070509
  Transmission Date: 20110219
  Serious: No
  Sender: FDA-Public Use
  Company Number: US-PFIZER INC-2007037809

PATIENT
  Sex: Female
  Weight: 63.181 kg

DRUGS (5)
  1. CHANTIX [Suspect]
     Indication: SMOKING CESSATION THERAPY
     Dates: start: 20070301, end: 20070507
  2. LOVASTATIN [Concomitant]
  3. ZETIA [Concomitant]
  4. ALL OTHER THERAPEUTIC PRODUCTS [Concomitant]
  5. CALCIUM WITH VITAMIN D [Concomitant]

REACTIONS (10)
  - ABDOMINAL DISTENSION [None]
  - APPETITE DISORDER [None]
  - BODY HEIGHT INCREASED [None]
  - BOWEL MOVEMENT IRREGULARITY [None]
  - DECREASED APPETITE [None]
  - FLATULENCE [None]
  - INSOMNIA [None]
  - NAUSEA [None]
  - NIGHT SWEATS [None]
  - NOCTURIA [None]
